FAERS Safety Report 8620844-X (Version None)
Quarter: 2012Q3

REPORT INFORMATION
  Report Type: 
  Country: None (occurrence: None)
  Receive Date: 20120824
  Receipt Date: 20120813
  Transmission Date: 20120928
  Serious: Yes (Other)
  Sender: FDA-Public Use
  Company Number: US-VERTEX PHARMACEUTICAL INC.-AE-2012-010752

PATIENT
  Sex: Male
  Weight: 85.455 kg

DRUGS (4)
  1. RIBAVIRIN [Suspect]
     Indication: HEPATITIS C
     Route: 048
     Dates: start: 20120625, end: 20120701
  2. INCIVEK [Suspect]
     Indication: HEPATITIS C
     Dosage: 750 MG, TID
     Route: 048
     Dates: start: 20120625, end: 20120701
  3. PEGASYS [Suspect]
     Indication: HEPATITIS C
     Route: 058
     Dates: start: 20120625, end: 20120701
  4. LOSARTAN POTASSIUM [Suspect]
     Dosage: 50 MG, QD
     Route: 048

REACTIONS (2)
  - PEMPHIGUS [None]
  - STEVENS-JOHNSON SYNDROME [None]
